FAERS Safety Report 9224718 (Version 1)
Quarter: 2013Q2

REPORT INFORMATION
  Report Type: Other
  Country: GB (occurrence: GB)
  Receive Date: 20130411
  Receipt Date: 20130411
  Transmission Date: 20140414
  Serious: Yes (Death, Hospitalization)
  Sender: FDA-Public Use
  Company Number: GB-BRISTOL-MYERS SQUIBB COMPANY-18736686

PATIENT
  Age: 74 Year
  Sex: Female

DRUGS (2)
  1. WARFARIN SODIUM [Suspect]
     Indication: MITRAL VALVE REPLACEMENT
  2. HEPARIN [Concomitant]

REACTIONS (3)
  - Pneumonia [Fatal]
  - Intestinal haematoma [Unknown]
  - Large intestinal obstruction [Unknown]
